FAERS Safety Report 23069915 (Version 2)
Quarter: 2023Q4

REPORT INFORMATION
  Report Type: Spontaneous
  Country: PT (occurrence: PT)
  Receive Date: 20231016
  Receipt Date: 20231017
  Transmission Date: 20240110
  Serious: Yes (Death, Hospitalization)
  Sender: FDA-Public Use
  Company Number: PT-PFIZER INC-202300320336

PATIENT
  Age: 82 Year
  Sex: Male

DRUGS (1)
  1. TAFAMIDIS MEGLUMINE [Suspect]
     Active Substance: TAFAMIDIS MEGLUMINE
     Indication: Cardiac amyloidosis
     Dosage: 61 MG
     Route: 048
     Dates: start: 20191114, end: 202209

REACTIONS (5)
  - Fall [Fatal]
  - Craniocerebral injury [Fatal]
  - Subdural haematoma [Fatal]
  - Embolism [Fatal]
  - Peripheral ischaemia [Fatal]

NARRATIVE: CASE EVENT DATE: 20220901
